FAERS Safety Report 8222872-5 (Version None)
Quarter: 2012Q1

REPORT INFORMATION
  Report Type: 
  Country: None (occurrence: None)
  Receive Date: 20120320
  Receipt Date: 20120313
  Transmission Date: 20120608
  Serious: Yes (Other)
  Sender: FDA-Public Use
  Company Number: CA-PFIZER INC-2012066140

PATIENT
  Age: 75 Year
  Sex: Male

DRUGS (3)
  1. XALATAN [Suspect]
     Indication: GLAUCOMA
     Dosage: 1 GTT, 1X/DAY IN LEFT EYE
     Route: 047
  2. RABEPRAZOLE SODIUM [Concomitant]
     Indication: ERUCTATION
     Dosage: UNK
  3. LATANOPROST [Suspect]
     Indication: GLAUCOMA
     Dosage: 1 GTT, 1X/DAY IN LEFT EYE
     Route: 047

REACTIONS (3)
  - INTRAOCULAR PRESSURE TEST [None]
  - DRUG INEFFECTIVE [None]
  - APHASIA [None]
